FAERS Safety Report 8813506 (Version 1)
Quarter: 2012Q4

REPORT INFORMATION
  Report Type: 
  Country: US (occurrence: US)
  Receive Date: 20120927
  Receipt Date: 20120927
  Transmission Date: 20130627
  Serious: No
  Sender: FDA-Public Use
  Company Number: US-AMGEN-USASP2012048820

PATIENT
  Age: 69 Year
  Sex: Female

DRUGS (12)
  1. PROLIA [Suspect]
     Indication: OSTEOPOROSIS POSTMENOPAUSAL
     Dosage: 60 mg, q6mo
     Dates: start: 201112
  2. VITAMIN D /00107901/ [Concomitant]
     Dosage: 1 IU, qwk
  3. PRILOSEC                           /00661201/ [Concomitant]
     Dosage: 1 mg, qd
  4. BYSTOLIC [Concomitant]
     Dosage: UNK
  5. DILTIAZEM [Concomitant]
     Dosage: UNK
  6. LEVOTHYROXINE [Concomitant]
     Dosage: UNK
  7. TYLENOL ARTHRITIS [Concomitant]
     Dosage: UNK
  8. CALCIUM [Concomitant]
     Dosage: UNK
  9. PREMARIN VAGINAL [Concomitant]
     Dosage: UNK
  10. MILK OF MAGNESIA [Concomitant]
     Dosage: UNK
  11. NITROGLYCERIN [Concomitant]
     Dosage: UNK
  12. VITAMIN B-12 [Concomitant]
     Dosage: UNK

REACTIONS (2)
  - Weight increased [Not Recovered/Not Resolved]
  - Fat redistribution [Not Recovered/Not Resolved]
